FAERS Safety Report 5903641-5 (Version None)
Quarter: 2008Q3

REPORT INFORMATION
  Report Type: 
  Country: None (occurrence: None)
  Receive Date: 20080919
  Receipt Date: 20080805
  Transmission Date: 20090109
  Serious: No
  Sender: FDA-Public Use
  Company Number: US-WYE-H05400508

PATIENT
  Age: 61 Year
  Sex: Female
  Weight: 124.85 kg

DRUGS (3)
  1. PRISTIQ [Suspect]
     Indication: DEPRESSION
     Dosage: 50 MG 1X PER 1 DAY, ORAL
     Route: 048
     Dates: start: 20080804
  2. SYNTHROID [Concomitant]
  3. AMLODIPINE [Concomitant]

REACTIONS (2)
  - PARAESTHESIA [None]
  - PRURITUS [None]
